FAERS Safety Report 6037873-5 (Version None)
Quarter: 2009Q1

REPORT INFORMATION
  Report Type: 
  Country: None (occurrence: None)
  Receive Date: 20090115
  Receipt Date: 20090108
  Transmission Date: 20090719
  Serious: Yes (Life-Threatening, Hospitalization)
  Sender: FDA-Public Use
  Company Number: IT-BRISTOL-MYERS SQUIBB COMPANY-14436422

PATIENT
  Age: 51 Year
  Sex: Female

DRUGS (5)
  1. GLUCOPHAGE [Suspect]
     Indication: DIABETES MELLITUS
     Dosage: STRENGTH = 500MG
     Route: 048
     Dates: start: 20010101, end: 20070430
  2. GLICONORM [Concomitant]
     Dosage: STRENGTH 5MG+500MG
     Route: 048
  3. CONCOR [Concomitant]
     Dosage: STRENGTH 10MG
  4. TRIATEC HCT [Concomitant]
  5. ASPIRIN [Concomitant]
     Dosage: STRENGTH 100MG

REACTIONS (2)
  - ACID BASE BALANCE ABNORMAL [None]
  - RENAL FAILURE ACUTE [None]
